FAERS Safety Report 18456446 (Version 2)
Quarter: 2020Q4

REPORT INFORMATION
  Report Type: Report from Study
  Country: IE (occurrence: IE)
  Receive Date: 20201103
  Receipt Date: 20201229
  Transmission Date: 20210114
  Serious: Yes (Hospitalization, Other)
  Sender: FDA-Public Use
  Company Number: IE-EMD SERONO-9195382

PATIENT
  Age: 73 Year
  Sex: Male

DRUGS (4)
  1. HYDROCORTISONE. [Concomitant]
     Active Substance: HYDROCORTISONE
     Indication: PRODUCT USED FOR UNKNOWN INDICATION
  2. SAIZEN [Suspect]
     Active Substance: SOMATROPIN
     Indication: PRODUCT USED FOR UNKNOWN INDICATION
     Dosage: 0.1 UNITS UNSPECIFIED
     Route: 058
     Dates: start: 20100729, end: 20120510
  3. SAIZEN [Suspect]
     Active Substance: SOMATROPIN
     Dosage: REINTRODUCED
     Route: 058
     Dates: start: 202009
  4. SAIZEN [Suspect]
     Active Substance: SOMATROPIN
     Dosage: ALTERNATE NIGHTS, CARTRIDGE
     Route: 058
     Dates: start: 20120510, end: 20200729

REACTIONS (2)
  - Illness [Recovering/Resolving]
  - Surgery [Recovered/Resolved]

NARRATIVE: CASE EVENT DATE: 2020
